FAERS Safety Report 9027143 (Version 1)
Quarter: 2013Q1

REPORT INFORMATION
  Report Type: Report from Study
  Country: US (occurrence: US)
  Receive Date: 20130123
  Receipt Date: 20130123
  Transmission Date: 20140127
  Serious: Yes (Hospitalization)
  Sender: FDA-Public Use
  Company Number: US-GLAXOSMITHKLINE-A0996729B

PATIENT
  Age: 87 Year
  Sex: Male
  Weight: 64.6 kg

DRUGS (16)
  1. OFATUMUMAB [Suspect]
     Indication: CHRONIC LYMPHOCYTIC LEUKAEMIA
     Dosage: 1000MG CYCLIC
     Route: 042
     Dates: start: 20110409
  2. ALEMTUZUMAB [Suspect]
     Indication: CHRONIC LYMPHOCYTIC LEUKAEMIA
     Dosage: 30MG CYCLIC
     Route: 058
     Dates: start: 20120918
  3. METHYLPREDNISOLONE [Suspect]
     Indication: CHRONIC LYMPHOCYTIC LEUKAEMIA
  4. DORZOLAMIDE [Concomitant]
     Dosage: 1DROP TWICE PER DAY
  5. ECOTRIN [Concomitant]
     Dosage: 81MG ALTERNATE DAYS
     Route: 048
  6. ENABLEX [Concomitant]
     Dosage: 7.5MG PER DAY
     Route: 048
  7. FLONASE [Concomitant]
     Dosage: 2SPR PER DAY
     Route: 045
  8. LEVAQUIN [Concomitant]
     Dosage: 500MG ALTERNATE DAYS
     Route: 048
  9. LUMIGAN [Concomitant]
     Dosage: 1DROP PER DAY
     Route: 047
  10. MEPRON [Concomitant]
     Dosage: 750MG TWICE PER DAY
     Route: 048
  11. MULTIVITAMIN [Concomitant]
     Dosage: 1TAB PER DAY
     Route: 048
  12. OMEPRAZOLE [Concomitant]
     Dosage: 20MG PER DAY
     Route: 048
  13. SUDAFED [Concomitant]
     Dosage: 30MG FOUR TIMES PER DAY
     Route: 048
  14. TAMIFLU [Concomitant]
     Dosage: 75MG TWICE PER DAY
     Route: 048
  15. VALGANCYCLOVIR [Concomitant]
     Dosage: 450MG TWICE PER DAY
     Route: 048
  16. VITAMIN D3 [Concomitant]
     Dosage: 1000UNIT PER DAY
     Route: 048

REACTIONS (2)
  - Febrile neutropenia [Not Recovered/Not Resolved]
  - Pulmonary mycosis [Not Recovered/Not Resolved]
